FAERS Safety Report 4578019-X (Version None)
Quarter: 2005Q1

REPORT INFORMATION
  Report Type: 
  Country: None (occurrence: None)
  Receive Date: 20050127
  Receipt Date: 20040830
  Transmission Date: 20050727
  Serious: No
  Sender: FDA-Public Use
  Company Number: USA040877008

PATIENT
  Age: 7 Year
  Sex: Male
  Weight: 23 kg

DRUGS (5)
  1. STRATTERA [Suspect]
     Indication: ATTENTION DEFICIT/HYPERACTIVITY DISORDER
     Dates: start: 20040601
  2. SINGULAIR (MONTELUKAST) [Concomitant]
  3. PULMICORT [Concomitant]
  4. ALBUTEROL [Concomitant]
  5. IH [Concomitant]

REACTIONS (1)
  - CONTUSION [None]
